FAERS Safety Report 9976742 (Version 1)
Quarter: 2014Q1

REPORT INFORMATION
  Report Type: Spontaneous
  Country: US (occurrence: US)
  Receive Date: 20140306
  Receipt Date: 20140306
  Transmission Date: 20141002
  Serious: No
  Sender: FDA-Public Use
  Company Number: US-ABBVIE-13P-163-1166108-00

PATIENT
  Age: 52 Year
  Sex: Female
  Weight: 104.42 kg

DRUGS (4)
  1. HUMIRA [Suspect]
     Indication: CROHN^S DISEASE
     Dosage: LOADING DOSE
     Route: 058
     Dates: start: 201106, end: 201106
  2. HUMIRA [Suspect]
     Dosage: TWO WEEKS AFTER INITIAL DOSE
     Route: 058
     Dates: start: 201106, end: 201106
  3. HUMIRA [Suspect]
     Dosage: FOUR WEEKS AFTER INITIAL DOSE
     Route: 058
     Dates: start: 201106
  4. SYNTHROID [Concomitant]
     Indication: HYPOTHYROIDISM

REACTIONS (2)
  - Nerve degeneration [Not Recovered/Not Resolved]
  - Neuropathy peripheral [Not Recovered/Not Resolved]
